FAERS Safety Report 9198431 (Version 2)
Quarter: 2013Q3

REPORT INFORMATION
  Report Type: Spontaneous
  Country: US (occurrence: None)
  Receive Date: 20120709
  Receipt Date: 20130724
  Transmission Date: 20140515
  Serious: Yes (Other)
  Sender: FDA-Public Use
  Company Number: PHEH2011US06836

PATIENT
  Age: 71 Year
  Sex: Male

DRUGS (1)
  1. GLEEVEC (IMATINIB) [Suspect]
     Indication: GASTROINTESTINAL CARCINOMA
     Dosage: (400 MG)
     Route: 048
     Dates: start: 20110801

REACTIONS (4)
  - Thrombocytopenia [None]
  - Fatigue [None]
  - Weight decreased [None]
  - Visual impairment [None]
